FAERS Safety Report 4710122-3 (Version None)
Quarter: 2005Q3

REPORT INFORMATION
  Report Type: 
  Country: None (occurrence: None)
  Receive Date: 20050708
  Receipt Date: 20050708
  Transmission Date: 20060218
  Serious: Yes (Life-Threatening, Hospitalization, Disabling, Other)
  Sender: FDA-Public Use
  Company Number: None

PATIENT
  Age: 64 Year
  Sex: Female
  Weight: 74.3899 kg

DRUGS (7)
  1. VIOXX [Suspect]
     Indication: ARTHRITIS
     Dosage: 1 TABLET DAILY
     Dates: start: 20030401, end: 20050101
  2. BEXTRA [Suspect]
     Indication: ARTHRITIS
     Dosage: 1 TABLET   DAILY
     Dates: start: 20030301, end: 20030601
  3. BEXTRA [Suspect]
     Indication: PAIN
     Dosage: 1 TABLET   DAILY
     Dates: start: 20030301, end: 20030601
  4. ACCUPRIL [Concomitant]
  5. DECTROL LA [Concomitant]
  6. BEXTRA [Concomitant]
  7. LIPITOR [Concomitant]

REACTIONS (6)
  - CARDIAC DISORDER [None]
  - CHEST PAIN [None]
  - HYPOAESTHESIA [None]
  - MUSCLE SPASMS [None]
  - NECK PAIN [None]
  - PAIN IN EXTREMITY [None]
